FAERS Safety Report 10350636 (Version 1)
Quarter: 2014Q3

REPORT INFORMATION
  Report Type: Spontaneous
  Country: US (occurrence: US)
  Receive Date: 20140730
  Receipt Date: 20140730
  Transmission Date: 20150326
  Serious: No
  Sender: FDA-Public Use
  Company Number: US-BRISTOL-MYERS SQUIBB COMPANY-21019286

PATIENT
  Age: 60 Year
  Sex: Female
  Weight: 91.61 kg

DRUGS (2)
  1. METFORMIN [Concomitant]
     Active Substance: METFORMIN HYDROCHLORIDE
  2. FARXIGA [Suspect]
     Active Substance: DAPAGLIFLOZIN PROPANEDIOL
     Route: 048
     Dates: start: 20140527

REACTIONS (6)
  - Tremor [Unknown]
  - Asthenia [Unknown]
  - Flank pain [Unknown]
  - Dizziness [Unknown]
  - Hyperhidrosis [Unknown]
  - Irritability [Unknown]
